FAERS Safety Report 6626684-5 (Version None)
Quarter: 2010Q1

REPORT INFORMATION
  Report Type: 
  Country: None (occurrence: None)
  Receive Date: 20100308
  Receipt Date: 20100223
  Transmission Date: 20100710
  Serious: No
  Sender: FDA-Public Use
  Company Number: 8055337

PATIENT
  Sex: Male

DRUGS (1)
  1. KEPPRA [Suspect]
     Dosage: (250 MG, DOSE FREQ : DAILY)

REACTIONS (2)
  - DERMATITIS ALLERGIC [None]
  - SEBORRHOEIC KERATOSIS [None]
